FAERS Safety Report 4823983-4 (Version None)
Quarter: 2005Q4

REPORT INFORMATION
  Report Type: 
  Country: None (occurrence: None)
  Receive Date: 20051109
  Receipt Date: 20051101
  Transmission Date: 20060501
  Serious: Yes (Hospitalization)
  Sender: FDA-Public Use
  Company Number: GB-JNJFOC-20051100298

PATIENT
  Sex: Female
  Weight: 76 kg

DRUGS (19)
  1. REMICADE [Suspect]
     Route: 042
  2. AQUEOUS CREAM [Concomitant]
     Route: 065
  3. AQUEOUS CREAM [Concomitant]
     Route: 065
  4. AQUEOUS CREAM [Concomitant]
     Route: 065
  5. ASILONE [Concomitant]
     Route: 065
  6. BENDROFLUAZIDE [Concomitant]
     Route: 065
  7. CYCLOSPORINE [Concomitant]
     Route: 065
  8. CODEINE PHOSPHATE AND ACETAMINOPHEN [Concomitant]
     Route: 065
  9. CODEINE PHOSPHATE AND ACETAMINOPHEN [Concomitant]
     Route: 065
  10. DOMPERIDONE [Concomitant]
     Route: 065
  11. EMOLLIENT CREAM [Concomitant]
     Route: 065
  12. FELODIPINE [Concomitant]
     Route: 065
  13. LOSARTAN [Concomitant]
     Route: 065
  14. OILATUM [Concomitant]
     Route: 065
  15. OILATUM [Concomitant]
     Route: 065
  16. OMEPRAZOLE [Concomitant]
     Route: 065
  17. PAROXETINE HCL [Concomitant]
     Route: 065
  18. ROFECOXIB [Concomitant]
     Route: 065
  19. TOLTERODINE [Concomitant]
     Route: 065

REACTIONS (1)
  - PSORIASIS [None]
